FAERS Safety Report 4735646-4 (Version None)
Quarter: 2005Q3

REPORT INFORMATION
  Report Type: 
  Country: None (occurrence: None)
  Receive Date: 20050805
  Receipt Date: 20050726
  Transmission Date: 20060218
  Serious: Yes (Hospitalization)
  Sender: FDA-Public Use
  Company Number: FR-GLAXOSMITHKLINE-B0389267A

PATIENT
  Age: 54 Year
  Sex: Male
  Weight: 85 kg

DRUGS (7)
  1. AZANTAC [Suspect]
     Route: 048
     Dates: start: 20040408, end: 20040414
  2. APRANAX [Suspect]
     Route: 048
     Dates: start: 20040408, end: 20040411
  3. DI ANTALVIC [Suspect]
     Route: 048
     Dates: start: 20040408, end: 20040414
  4. MYOLASTAN [Suspect]
     Route: 048
     Dates: start: 20040408, end: 20040414
  5. PROPOFOL [Suspect]
     Route: 048
     Dates: start: 20040408, end: 20040414
  6. THIOCOLCHICOSIDE [Suspect]
     Route: 048
     Dates: start: 20040408, end: 20040414
  7. CORTICOTHERAPY [Concomitant]
     Route: 030
     Dates: start: 20040401, end: 20040401

REACTIONS (14)
  - ANURIA [None]
  - COUGH [None]
  - CYANOSIS [None]
  - DYSPNOEA [None]
  - HYPOXIA [None]
  - MENINGITIS PNEUMOCOCCAL [None]
  - METABOLIC ACIDOSIS [None]
  - PERICARDIAL EFFUSION [None]
  - PIGMENTATION DISORDER [None]
  - PLEURAL EFFUSION [None]
  - PNEUMOCOCCAL SEPSIS [None]
  - PNEUMONIA PNEUMOCOCCAL [None]
  - RENAL FAILURE ACUTE [None]
  - SPINAL COMPRESSION FRACTURE [None]
